FAERS Safety Report 5004227-X (Version None)
Quarter: 2006Q2

REPORT INFORMATION
  Report Type: 
  Country: None (occurrence: None)
  Receive Date: 20060517
  Receipt Date: 20050520
  Transmission Date: 20061013
  Serious: Yes (Hospitalization)
  Sender: FDA-Public Use
  Company Number: US-MERCK-0505USA02535

PATIENT
  Age: 76 Year
  Sex: Female
  Weight: 77 kg

DRUGS (4)
  1. VIOXX [Suspect]
     Indication: ABDOMINAL PAIN UPPER
     Route: 048
     Dates: start: 20030101, end: 20030101
  2. VIOXX [Suspect]
     Indication: MYALGIA
     Route: 048
     Dates: start: 20030101, end: 20030101
  3. RESERPINE [Concomitant]
     Route: 065
  4. TOPROL-XL [Concomitant]
     Route: 065

REACTIONS (20)
  - ANAEMIA [None]
  - BLOOD GLUCOSE INCREASED [None]
  - BLOOD UREA INCREASED [None]
  - CHEST DISCOMFORT [None]
  - CORONARY ARTERY DISEASE [None]
  - DIABETES MELLITUS NON-INSULIN-DEPENDENT [None]
  - DIASTOLIC DYSFUNCTION [None]
  - GASTROINTESTINAL HAEMORRHAGE [None]
  - HERPES ZOSTER [None]
  - HYPERGLYCAEMIA [None]
  - HYPOKALAEMIA [None]
  - MITRAL VALVE INCOMPETENCE [None]
  - MYOCARDIAL INFARCTION [None]
  - PEPTIC ULCER [None]
  - POLYTRAUMATISM [None]
  - SINUS TACHYCARDIA [None]
  - SUPRAVENTRICULAR TACHYCARDIA [None]
  - SYNCOPE [None]
  - TRICUSPID VALVE INCOMPETENCE [None]
  - VENTRICULAR HYPERTROPHY [None]
